FAERS Safety Report 15323923 (Version 6)
Quarter: 2020Q1

REPORT INFORMATION
  Report Type: Report from Study
  Country: JP (occurrence: JP)
  Receive Date: 20180828
  Receipt Date: 20200302
  Transmission Date: 20200409
  Serious: Yes (Death, Life-Threatening, Hospitalization, Other)
  Sender: FDA-Public Use
  Company Number: JP-AMGEN-JPNSP2018117867

PATIENT
  Age: 90 Year
  Sex: Female

DRUGS (20)
  1. ROMIPLOSTIM [Suspect]
     Active Substance: ROMIPLOSTIM
     Dosage: 6.4 MICROGRAM/KILOGRAM, Q2WK
     Route: 065
     Dates: start: 20160902, end: 20161122
  2. ROMIPLOSTIM [Suspect]
     Active Substance: ROMIPLOSTIM
     Dosage: 2.9 MICROGRAM/KILOGRAM
     Route: 065
     Dates: start: 20151118, end: 20151118
  3. ROMIPLOSTIM [Suspect]
     Active Substance: ROMIPLOSTIM
     Dosage: 6.4 MICROGRAM/KILOGRAM, Q2WK
     Route: 065
     Dates: start: 20160108, end: 20160205
  4. ROMIPLOSTIM [Suspect]
     Active Substance: ROMIPLOSTIM
     Dosage: 6.4 MICROGRAM/KILOGRAM
     Route: 065
     Dates: start: 20160223, end: 20160223
  5. ROMIPLOSTIM [Suspect]
     Active Substance: ROMIPLOSTIM
     Dosage: 6.4 MICROGRAM/KILOGRAM, QWK
     Route: 065
     Dates: start: 20161129, end: 20170125
  6. ROMIPLOSTIM [Suspect]
     Active Substance: ROMIPLOSTIM
     Dosage: 6.4 MICROGRAM/KILOGRAM
     Route: 065
     Dates: start: 20151217, end: 20151217
  7. ROMIPLOSTIM [Suspect]
     Active Substance: ROMIPLOSTIM
     Dosage: 6.4 MICROGRAM/KILOGRAM, Q2WK
     Route: 065
     Dates: start: 20160311, end: 20160422
  8. ROMIPLOSTIM [Suspect]
     Active Substance: ROMIPLOSTIM
     Dosage: 6.4 MICROGRAM/KILOGRAM, Q2WK
     Route: 065
     Dates: start: 20160509, end: 20160620
  9. ROMIPLOSTIM [Suspect]
     Active Substance: ROMIPLOSTIM
     Dosage: 6.4 MICROGRAM/KILOGRAM, Q2WK
     Route: 065
     Dates: start: 20160725, end: 20160822
  10. ROMIPLOSTIM [Suspect]
     Active Substance: ROMIPLOSTIM
     Dosage: 6.4 MICROGRAM/KILOGRAM, Q2WK
     Route: 065
     Dates: start: 20170206, end: 20170222
  11. ROMIPLOSTIM [Suspect]
     Active Substance: ROMIPLOSTIM
     Dosage: 2.9 MICROGRAM/KILOGRAM, Q2WK
     Route: 065
     Dates: start: 20150611, end: 20151029
  12. ROMIPLOSTIM [Suspect]
     Active Substance: ROMIPLOSTIM
     Dosage: 2.9 MICROGRAM/KILOGRAM
     Route: 065
     Dates: start: 20150601, end: 20150601
  13. ROMIPLOSTIM [Suspect]
     Active Substance: ROMIPLOSTIM
     Dosage: 6.4 MICROGRAM/KILOGRAM
     Route: 065
     Dates: start: 20151228, end: 20151228
  14. ROMIPLOSTIM [Suspect]
     Active Substance: ROMIPLOSTIM
     Dosage: 6.4 MICROGRAM/KILOGRAM, Q2WK
     Route: 065
     Dates: start: 20160701, end: 20160715
  15. FERROUS CITRATE NA [Concomitant]
     Active Substance: SODIUM FERROUS CITRATE
     Dosage: UNK
     Route: 048
  16. ROMIPLOSTIM [Suspect]
     Active Substance: ROMIPLOSTIM
     Dosage: 5.1 MICROGRAM/KILOGRAM
     Route: 065
     Dates: start: 20151201, end: 20151201
  17. FERROUS CITRATE NA [Concomitant]
     Active Substance: SODIUM FERROUS CITRATE
     Indication: IRON DEFICIENCY ANAEMIA
     Dosage: UNK
     Route: 048
  18. ROMIPLOSTIM [Suspect]
     Active Substance: ROMIPLOSTIM
     Indication: IMMUNE THROMBOCYTOPENIC PURPURA
     Dosage: 1 MICROGRAM/KILOGRAM
     Route: 065
     Dates: start: 20150518, end: 20150518
  19. ROMIPLOSTIM [Suspect]
     Active Substance: ROMIPLOSTIM
     Dosage: 2 MICROGRAM/KILOGRAM
     Route: 065
     Dates: start: 20150525, end: 20150525
  20. MINOCYCLINE [Concomitant]
     Active Substance: MINOCYCLINE HYDROCHLORIDE
     Indication: PNEUMONIA
     Dosage: UNK
     Route: 048
     Dates: start: 20161109

REACTIONS (10)
  - Pneumonia [Recovering/Resolving]
  - Ureterolithiasis [Unknown]
  - Cystitis [Unknown]
  - Fall [Recovering/Resolving]
  - Sepsis [Fatal]
  - Acute respiratory distress syndrome [Fatal]
  - Subdural haematoma [Recovered/Resolved with Sequelae]
  - Rib fracture [Recovering/Resolving]
  - Renal failure [Not Recovered/Not Resolved]
  - Humerus fracture [Recovering/Resolving]

NARRATIVE: CASE EVENT DATE: 20161109
